FAERS Safety Report 18306405 (Version 2)
Quarter: 2020Q4

REPORT INFORMATION
  Report Type: Report from Study
  Country: None (occurrence: US)
  Receive Date: 20200923
  Receipt Date: 20201007
  Transmission Date: 20210113
  Serious: Yes (Other)
  Sender: FDA-Public Use
  Company Number: US-ABBVIE-20K-163-3572549-00

PATIENT
  Age: 69 Year
  Sex: Male
  Weight: 69.46 kg

DRUGS (1)
  1. HUMIRA [Suspect]
     Active Substance: ADALIMUMAB
     Indication: COLITIS ULCERATIVE
     Dosage: CITRATE FREE
     Route: 058
     Dates: start: 201711

REACTIONS (8)
  - Gait disturbance [Recovered/Resolved]
  - Fall [Recovered/Resolved]
  - Head injury [Recovering/Resolving]
  - Back injury [Recovering/Resolving]
  - Dislocation of vertebra [Recovering/Resolving]
  - Post-traumatic neck syndrome [Recovering/Resolving]
  - Limb injury [Recovering/Resolving]
  - Eye disorder [Recovering/Resolving]

NARRATIVE: CASE EVENT DATE: 2020
